FAERS Safety Report 6446231-0 (Version None)
Quarter: 2009Q4

REPORT INFORMATION
  Report Type: 
  Country: None (occurrence: None)
  Receive Date: 20091116
  Receipt Date: 20091103
  Transmission Date: 20100525
  Serious: Yes (Hospitalization, Disabling)
  Sender: FDA-Public Use
  Company Number: SPV1-2009-02104

PATIENT
  Age: 12 Year
  Sex: Male

DRUGS (4)
  1. VYVANSE [Suspect]
     Indication: ATTENTION DEFICIT/HYPERACTIVITY DISORDER
     Dosage: 20 MG, 1X/DAY:QD, ORAL, 30 MG, 1X/DAY:QD, ORAL
     Route: 048
     Dates: start: 20090511, end: 20090911
  2. VYVANSE [Suspect]
     Indication: ATTENTION DEFICIT/HYPERACTIVITY DISORDER
     Dosage: 20 MG, 1X/DAY:QD, ORAL, 30 MG, 1X/DAY:QD, ORAL
     Route: 048
     Dates: start: 20090912, end: 20091018
  3. TRAZODONE HCL [Concomitant]
  4. VISTARIL (HYDROXYZINE HYDROCHLORIDE) [Concomitant]

REACTIONS (9)
  - CARDIAC ARREST [None]
  - CARDIAC DISORDER [None]
  - CARDIOMYOPATHY [None]
  - CHEST PAIN [None]
  - FALL [None]
  - FATIGUE [None]
  - LEFT VENTRICULAR FAILURE [None]
  - RIGHT VENTRICULAR FAILURE [None]
  - URINARY TRACT INFECTION [None]
